FAERS Safety Report 21763417 (Version 1)
Quarter: 2022Q4

REPORT INFORMATION
  Report Type: Spontaneous
  Country: US (occurrence: None)
  Receive Date: 20221221
  Receipt Date: 20221221
  Transmission Date: 20230112
  Serious: Yes (Hospitalization, Other)
  Sender: FDA-Public Use
  Company Number: US-MICRO LABS LIMITED-ML2022-06310

PATIENT
  Age: 58 Year
  Sex: Male

DRUGS (1)
  1. ACETAZOLAMIDE [Suspect]
     Active Substance: ACETAZOLAMIDE
     Indication: Specialist consultation
     Dosage: HIGH DOSE

REACTIONS (2)
  - Neurotoxicity [Recovered/Resolved]
  - Paralysis [Recovered/Resolved]
